FAERS Safety Report 10031497 (Version 1)
Quarter: 2014Q1

REPORT INFORMATION
  Report Type: Spontaneous
  Country: JP (occurrence: JP)
  Receive Date: 20140324
  Receipt Date: 20140324
  Transmission Date: 20141002
  Serious: Yes (Other)
  Sender: FDA-Public Use
  Company Number: JP-ASTELLAS-2014JP002540

PATIENT
  Age: 28 Year
  Sex: Female

DRUGS (7)
  1. PROTOPIC [Suspect]
     Indication: BREAST INFLAMMATION
     Dosage: 0.1 %, UNKNOWN/D
     Route: 061
  2. PROGRAF [Suspect]
     Indication: BREAST INFLAMMATION
     Dosage: 3 MG, UNKNOWN/D
     Route: 048
  3. PREDONINE                          /00016201/ [Concomitant]
     Indication: BREAST INFLAMMATION
     Dosage: 5 MG, UNKNOWN/D
     Route: 048
  4. PREDONINE                          /00016201/ [Concomitant]
     Dosage: 20 MG, UNKNOWN/D
     Route: 048
  5. PREDONINE                          /00016201/ [Concomitant]
     Dosage: 5 MG, UNKNOWN/D
     Route: 048
  6. ASPIRIN [Concomitant]
     Indication: PROPHYLAXIS
     Dosage: 100 MG, UNKNOWN/D
     Route: 048
  7. RIZABEN [Concomitant]
     Indication: BREAST INFLAMMATION
     Dosage: 300 MG, UNKNOWN/D
     Route: 048

REACTIONS (2)
  - Drug ineffective for unapproved indication [Unknown]
  - Breast inflammation [Recovering/Resolving]
